FAERS Safety Report 6747373-2 (Version None)
Quarter: 2010Q2

REPORT INFORMATION
  Report Type: 
  Country: None (occurrence: None)
  Receive Date: 20100528
  Receipt Date: 20100521
  Transmission Date: 20101027
  Serious: Yes (Other)
  Sender: FDA-Public Use
  Company Number: B0653127A

PATIENT
  Age: 9 Year
  Sex: Female

DRUGS (1)
  1. SERETIDE [Suspect]
     Indication: ASTHMA
     Route: 065
     Dates: end: 20100511

REACTIONS (2)
  - ASTHMA [None]
  - PRODUCT QUALITY ISSUE [None]
